FAERS Safety Report 20278985 (Version 2)
Quarter: 2022Q1

REPORT INFORMATION
  Report Type: Report from Study
  Country: EG (occurrence: EG)
  Receive Date: 20220103
  Receipt Date: 20220216
  Transmission Date: 20220423
  Serious: Yes (Other)
  Sender: FDA-Public Use
  Company Number: EG-NOVARTISPH-NVSC2021EG298960

PATIENT
  Age: 35 Year
  Sex: Female

DRUGS (4)
  1. GILENYA [Suspect]
     Active Substance: FINGOLIMOD HYDROCHLORIDE
     Indication: Multiple sclerosis
     Dosage: 0.5 MG, QD
     Route: 048
     Dates: start: 202109
  2. SELENIUM ACE [Concomitant]
     Indication: Blood iron
     Dosage: 1 DOSAGE FORM, QD
     Route: 048
     Dates: start: 202111
  3. INCONT [Concomitant]
     Indication: Urinary incontinence
     Dosage: 2 TABLETS PER DAY THEN DOSE CHANGED TO ONE TAB PER DAY
     Route: 065
     Dates: start: 202111
  4. CYMBATEX [Concomitant]
     Indication: Hypoaesthesia
     Dosage: 1 DOSAGE FORM, QD
     Route: 048
     Dates: start: 202106

REACTIONS (8)
  - Alopecia [Not Recovered/Not Resolved]
  - Headache [Not Recovered/Not Resolved]
  - Vitamin D deficiency [Unknown]
  - Eye pain [Not Recovered/Not Resolved]
  - Eye disorder [Not Recovered/Not Resolved]
  - Vision blurred [Not Recovered/Not Resolved]
  - Haemoglobin decreased [Unknown]
  - Sinusitis [Not Recovered/Not Resolved]

NARRATIVE: CASE EVENT DATE: 20210901
